FAERS Safety Report 24832840 (Version 2)
Quarter: 2025Q1

REPORT INFORMATION
  Report Type: Spontaneous
  Country: IN (occurrence: IN)
  Receive Date: 20250110
  Receipt Date: 20250307
  Transmission Date: 20250408
  Serious: Yes (Death, Hospitalization)
  Sender: ROCHE
  Company Number: IN-ROCHE-10000092713

PATIENT
  Age: 67 Year
  Sex: Male
  Weight: 68.0 kg

DRUGS (1)
  1. TECENTRIQ [Suspect]
     Active Substance: ATEZOLIZUMAB
     Indication: Hepatocellular carcinoma
     Route: 042
     Dates: start: 20240910

REACTIONS (2)
  - Off label use [Unknown]
  - Asthenia [Fatal]

NARRATIVE: CASE EVENT DATE: 20250107
